FAERS Safety Report 14291122 (Version 2)
Quarter: 2018Q1

REPORT INFORMATION
  Report Type: Spontaneous
  Country: IT (occurrence: IT)
  Receive Date: 20171215
  Receipt Date: 20180110
  Transmission Date: 20180509
  Serious: Yes (Life-Threatening)
  Sender: FDA-Public Use
  Company Number: IT-PFIZER INC-2017534232

PATIENT
  Age: 34 Year
  Sex: Male

DRUGS (4)
  1. CLOZAPINE. [Interacting]
     Active Substance: CLOZAPINE
     Dosage: 600 MG, 1X/DAY
     Route: 048
     Dates: end: 2017
  2. ANDROCUR [Interacting]
     Active Substance: CYPROTERONE ACETATE
     Indication: SCHIZOPHRENIA
     Dosage: 100 MG, 1X/DAY
     Route: 048
     Dates: end: 2017
  3. SERTRALINE HCL [Suspect]
     Active Substance: SERTRALINE HYDROCHLORIDE
     Indication: SCHIZOPHRENIA
     Dosage: 100 MG, 1X/DAY
     Route: 048
     Dates: end: 2017
  4. DEPAKIN [Interacting]
     Active Substance: VALPROATE SODIUM
     Indication: SCHIZOAFFECTIVE DISORDER
     Dosage: 600 MG, 1X/DAY
     Route: 048
     Dates: end: 2017

REACTIONS (4)
  - Pulmonary embolism [Recovered/Resolved with Sequelae]
  - Product use in unapproved indication [Unknown]
  - Drug interaction [Recovered/Resolved with Sequelae]
  - Pulmonary hypertension [Recovered/Resolved with Sequelae]

NARRATIVE: CASE EVENT DATE: 20170421
